FAERS Safety Report 4799783-0 (Version None)
Quarter: 2005Q4

REPORT INFORMATION
  Report Type: 
  Country: None (occurrence: None)
  Receive Date: 20051011
  Receipt Date: 20051011
  Transmission Date: 20060501
  Serious: Yes (Other)
  Sender: FDA-Public Use
  Company Number: None

PATIENT
  Age: 42 Year
  Sex: Female
  Weight: 53.5244 kg

DRUGS (5)
  1. TRENTAL [Suspect]
     Indication: LIVEDO RETICULARIS
  2. CELEXA [Suspect]
  3. PLAQUENIL [Concomitant]
  4. OXYCONTIN [Concomitant]
  5. FELDENE [Concomitant]

REACTIONS (4)
  - CONDITION AGGRAVATED [None]
  - PAIN [None]
  - PHARMACEUTICAL PRODUCT COMPLAINT [None]
  - SKIN DISCOLOURATION [None]
